FAERS Safety Report 9249918 (Version 5)
Quarter: 2013Q3

REPORT INFORMATION
  Report Type: Spontaneous
  Country: US (occurrence: US)
  Receive Date: 20130423
  Receipt Date: 20130703
  Transmission Date: 20140515
  Serious: Yes (Hospitalization, Other)
  Sender: FDA-Public Use
  Company Number: US-009507513-1206USA03578

PATIENT
  Sex: Female
  Weight: 73.16 kg

DRUGS (7)
  1. FOSAMAX [Suspect]
     Indication: OSTEOPOROSIS
     Dosage: 10 MG, QD
     Route: 048
     Dates: start: 1995, end: 200804
  2. FOSAMAX [Suspect]
     Indication: OSTEOPENIA
     Dosage: 70 MG, QW
     Route: 048
     Dates: end: 200804
  3. ALENDRONATE SODIUM [Suspect]
     Indication: OSTEOPOROSIS
     Dosage: 70 MG, QW
     Route: 048
     Dates: start: 200804, end: 200907
  4. ALENDRONATE SODIUM [Suspect]
     Indication: OSTEOPENIA
  5. HORMONES (UNSPECIFIED) [Concomitant]
     Dosage: UNK
     Dates: start: 1969, end: 2007
  6. VITAMIN D (UNSPECIFIED) [Concomitant]
     Dosage: UNK
     Dates: start: 1991
  7. CALCIUM (UNSPECIFIED) [Concomitant]
     Dosage: 500-1300 MG DAILY
     Dates: start: 1991

REACTIONS (38)
  - Femur fracture [Unknown]
  - Intramedullary rod insertion [Unknown]
  - Fibula fracture [Recovered/Resolved]
  - Chest pain [Unknown]
  - Cholecystectomy [Unknown]
  - Fall [Unknown]
  - Joint crepitation [Unknown]
  - Foot fracture [Unknown]
  - Barrett^s oesophagus [Recovered/Resolved]
  - Ankle fracture [Unknown]
  - Foot fracture [Unknown]
  - Pelvic fracture [Unknown]
  - Dental care [Unknown]
  - Peripheral embolism [Unknown]
  - Temporomandibular joint syndrome [Not Recovered/Not Resolved]
  - Ankle fracture [Unknown]
  - Hiatus hernia [Unknown]
  - Hypercholesterolaemia [Unknown]
  - Arthritis [Unknown]
  - Biopsy breast [Unknown]
  - Cystopexy [Unknown]
  - Hypertonic bladder [Unknown]
  - Hypertension [Unknown]
  - Cataract operation [Unknown]
  - Anaemia postoperative [Unknown]
  - Hysterectomy [Unknown]
  - Oropharyngeal pain [Unknown]
  - Joint injury [Recovering/Resolving]
  - Arthralgia [Not Recovered/Not Resolved]
  - Pain in extremity [Not Recovered/Not Resolved]
  - Local swelling [Unknown]
  - Back pain [Not Recovered/Not Resolved]
  - Gastrooesophageal reflux disease [Unknown]
  - Gastritis [Unknown]
  - Drug ineffective [Unknown]
  - Constipation [Unknown]
  - Nausea [Unknown]
  - Vomiting [Unknown]
